FAERS Safety Report 9206904 (Version 2)
Quarter: 2013Q4

REPORT INFORMATION
  Report Type: Spontaneous
  Country: US (occurrence: US)
  Receive Date: 20130403
  Receipt Date: 20131227
  Transmission Date: 20140711
  Serious: Yes (Other)
  Sender: FDA-Public Use
  Company Number: US-BAYER-2013-041092

PATIENT
  Age: 24 Year
  Sex: Female

DRUGS (7)
  1. YAZ [Suspect]
  2. YASMIN [Suspect]
  3. LORAZEPAM [Concomitant]
     Indication: ANXIETY
     Dosage: .05 MG, EVERY 8 HOURS PRN
     Route: 048
  4. LAMOTRIGINE [Concomitant]
     Dosage: 200 MG, HALF TABLET QHS
     Route: 048
  5. TRAMADOL HYDROCHLORIDE [Concomitant]
     Dosage: 50 MG, UNK
  6. DEXILANT [Concomitant]
     Dosage: 60 MG, ONCE A DAY
  7. TUMS [CALCIUM CARBONATE] [Concomitant]

REACTIONS (6)
  - Cholecystectomy [None]
  - Injury [None]
  - Emotional distress [None]
  - Pain [None]
  - Biliary dyskinesia [None]
  - Cholecystitis [None]
